FAERS Safety Report 10908525 (Version 1)
Quarter: 2015Q1

REPORT INFORMATION
  Report Type: Spontaneous
  Country: CA (occurrence: None)
  Receive Date: 20150309
  Receipt Date: 20150309
  Transmission Date: 20150721
  Serious: Yes (Other)
  Sender: FDA-Public Use
  Company Number: 2769494

PATIENT
  Age: 65 Year
  Sex: Male
  Weight: 100 kg

DRUGS (13)
  1. VITAMIN D [Concomitant]
     Active Substance: CHOLECALCIFEROL
  2. ATORVASTATIN [Concomitant]
     Active Substance: ATORVASTATIN
  3. METFORMIN [Concomitant]
     Active Substance: METFORMIN HYDROCHLORIDE
  4. SPIRONOLACTONE. [Concomitant]
     Active Substance: SPIRONOLACTONE
  5. ASA [Concomitant]
     Active Substance: ASPIRIN
  6. MULTIVITAMINS [Concomitant]
     Active Substance: VITAMINS
  7. CEFAZOLIN [Suspect]
     Active Substance: CEFAZOLIN
     Indication: INFECTION
     Dosage: 2 G GRAM(S) (3 DAY)?(NOT OTHERWISE SPECIFIED)
     Route: 042
  8. AMLODIPINE [Concomitant]
     Active Substance: AMLODIPINE BESYLATE
  9. HUMALOG [Concomitant]
     Active Substance: INSULIN LISPRO
  10. IRBESARTAN. [Concomitant]
     Active Substance: IRBESARTAN
  11. IBUPROFEN. [Concomitant]
     Active Substance: IBUPROFEN
  12. RIFAMPIN. [Concomitant]
     Active Substance: RIFAMPIN
  13. ALLOPURINOL. [Concomitant]
     Active Substance: ALLOPURINOL

REACTIONS (5)
  - Blood creatinine increased [None]
  - Eosinophils urine present [None]
  - Nausea [None]
  - Blood potassium decreased [None]
  - C-reactive protein abnormal [None]
